FAERS Safety Report 12114828 (Version 7)
Quarter: 2016Q4

REPORT INFORMATION
  Report Type: Spontaneous
  Country: JP (occurrence: JP)
  Receive Date: 20160225
  Receipt Date: 20161123
  Transmission Date: 20170206
  Serious: Yes (Death, Hospitalization, Disabling, Other)
  Sender: FDA-Public Use
  Company Number: JP-009507513-1602JPN009697

PATIENT
  Age: 75 Year
  Sex: Male
  Weight: 52 kg

DRUGS (14)
  1. DENOSINE [Suspect]
     Active Substance: GANCICLOVIR
     Dosage: 250 MG, BID
     Route: 051
     Dates: start: 20140719, end: 20140722
  2. GLIADEL [Concomitant]
     Active Substance: CARMUSTINE
     Dosage: 5 DF, QD, FORMULATION EXT
     Dates: start: 20140519
  3. TEMODAL [Suspect]
     Active Substance: TEMOZOLOMIDE
     Indication: GLIOBLASTOMA MULTIFORME
     Dosage: 100 MG, QD
     Route: 041
     Dates: start: 20140610, end: 20140625
  4. CLARITH [Concomitant]
     Active Substance: CLARITHROMYCIN
     Dosage: 200 MG, BID
     Route: 048
     Dates: start: 20140710, end: 20140718
  5. CEFPIROME SULFATE [Concomitant]
     Active Substance: CEFPIROME SULFATE
     Dosage: 1 G, BID
     Route: 051
     Dates: start: 20140717, end: 20160722
  6. MEROPENEM. [Concomitant]
     Active Substance: MEROPENEM
     Dosage: 0.5 G, BID
     Route: 051
     Dates: start: 20140701, end: 20140702
  7. MODACIN [Concomitant]
     Active Substance: CEFTAZIDIME
     Dosage: 1 G, BID
     Route: 051
     Dates: start: 20140703, end: 20140706
  8. CLINDAMYCIN. [Concomitant]
     Active Substance: CLINDAMYCIN
     Dosage: 600 MG, BID
     Route: 065
     Dates: start: 20140707, end: 20140709
  9. BEVACIZUMAB [Concomitant]
     Active Substance: BEVACIZUMAB
     Indication: GLIOBLASTOMA MULTIFORME
     Dosage: 500 MG, QD
     Route: 042
     Dates: start: 20140626, end: 20140626
  10. METHYLPREDNISOLONE. [Concomitant]
     Active Substance: METHYLPREDNISOLONE
     Dosage: DAILY DOSE UNKNOWN, . 250MGX3. 125X3 AND 40MG.
     Route: 065
     Dates: start: 20140710, end: 20140722
  11. BAKTAR [Concomitant]
     Active Substance: SULFAMETHOXAZOLE\TRIMETHOPRIM
     Dosage: 1 DOSAGE FORM, BID
     Route: 048
     Dates: start: 20140719, end: 20140722
  12. FINIBAX [Concomitant]
     Active Substance: DORIPENEM MONOHYDRATE
     Dosage: 0.5 G, BID
     Route: 051
     Dates: start: 20140707, end: 20140716
  13. AMPICILLIN AND SULBACTAM [Concomitant]
     Active Substance: AMPICILLIN SODIUM\SULBACTAM SODIUM
     Dosage: 1.5 G, BID
     Route: 051
     Dates: start: 20140623, end: 20140630
  14. BACTRAMIN [Concomitant]
     Active Substance: SULFAMETHOXAZOLE\TRIMETHOPRIM
     Dosage: 4 DOSAGE FROMS, TID
     Route: 051
     Dates: start: 20140706, end: 20140718

REACTIONS (7)
  - Lymphocyte count decreased [Not Recovered/Not Resolved]
  - Pneumonia aspiration [Not Recovered/Not Resolved]
  - Pneumonia pseudomonal [Not Recovered/Not Resolved]
  - Cytomegalovirus infection [Not Recovered/Not Resolved]
  - Pneumonia fungal [Fatal]
  - Anaemia [Not Recovered/Not Resolved]
  - Platelet count decreased [Not Recovered/Not Resolved]

NARRATIVE: CASE EVENT DATE: 20140623
